FAERS Safety Report 23995873 (Version 1)
Quarter: 2024Q2

REPORT INFORMATION
  Report Type: Spontaneous
  Country: US (occurrence: US)
  Receive Date: 20240620
  Receipt Date: 20240620
  Transmission Date: 20240716
  Serious: No
  Sender: FDA-Public Use
  Company Number: US-VISTAPHARM-2024-US-023900

PATIENT
  Sex: Female

DRUGS (3)
  1. SUCRALFATE ORAL SUSPENSION [Suspect]
     Active Substance: SUCRALFATE
     Indication: Ulcer
     Route: 048
     Dates: start: 202305
  2. METFORMIN [Concomitant]
     Active Substance: METFORMIN HYDROCHLORIDE
  3. ASPIRIN [Concomitant]
     Active Substance: ASPIRIN

REACTIONS (3)
  - Blood glucose increased [Not Recovered/Not Resolved]
  - Dry mouth [Not Recovered/Not Resolved]
  - Abdominal discomfort [Not Recovered/Not Resolved]
